FAERS Safety Report 8948473 (Version 2)
Quarter: 2012Q4

REPORT INFORMATION
  Report Type: 
  Country: US (occurrence: US)
  Receive Date: 20121121
  Receipt Date: 20121212
  Transmission Date: 20130627
  Serious: Yes (Death)
  Sender: FDA-Public Use
  Company Number: US-ASTELLAS-1117496

PATIENT
  Age: 82 Year
  Sex: Female

DRUGS (3)
  1. TARCEVA [Suspect]
     Indication: RENAL CANCER
     Route: 048
     Dates: start: 20050725, end: 20050821
  2. TARCEVA [Suspect]
     Indication: RENAL CELL CARCINOMA
  3. AVASTIN [Concomitant]
     Route: 042

REACTIONS (7)
  - Disease progression [Fatal]
  - Night sweats [Unknown]
  - Decreased appetite [Unknown]
  - Pyrexia [Unknown]
  - Fatigue [Unknown]
  - Diarrhoea [Unknown]
  - Oropharyngeal pain [Unknown]
